FAERS Safety Report 23144251 (Version 4)
Quarter: 2023Q4

REPORT INFORMATION
  Report Type: Spontaneous
  Country: US (occurrence: US)
  Receive Date: 20231103
  Receipt Date: 20231220
  Transmission Date: 20240110
  Serious: No
  Sender: FDA-Public Use
  Company Number: US-PFIZER INC-PV202300177001

PATIENT
  Age: 69 Year
  Sex: Female

DRUGS (1)
  1. IBRANCE [Suspect]
     Active Substance: PALBOCICLIB
     Dosage: 125 MG, CYCLIC (EVERYDAY FOR THE FIRST 21 DAYS OF EACH CYCLE)

REACTIONS (9)
  - Gait disturbance [Unknown]
  - Dizziness [Unknown]
  - Constipation [Unknown]
  - Dyspnoea exertional [Unknown]
  - Faeces discoloured [Unknown]
  - Dyspnoea [Unknown]
  - Diarrhoea [Unknown]
  - Fatigue [Unknown]
  - Decreased appetite [Unknown]
